FAERS Safety Report 8259410-7 (Version None)
Quarter: 2012Q2

REPORT INFORMATION
  Report Type: 
  Country: None (occurrence: None)
  Receive Date: 20120404
  Receipt Date: 20120322
  Transmission Date: 20120825
  Serious: Yes (Other)
  Sender: FDA-Public Use
  Company Number: GB-MYLANLABS-2012S1006273

PATIENT
  Age: 67 Year
  Sex: Male

DRUGS (5)
  1. LANSOPRAZOLE [Concomitant]
     Indication: DYSPEPSIA
     Dates: start: 20090508
  2. PERINDOPRIL ERBUMINE [Concomitant]
     Indication: HYPERTENSION
     Dates: start: 20091009
  3. GAVISCON [Concomitant]
     Indication: DYSPEPSIA
     Dates: start: 20071230
  4. NORTRIPTYLINE HCL [Concomitant]
     Indication: IRRITABLE BOWEL SYNDROME
     Dates: start: 20110311
  5. SIMVASTATIN [Suspect]
     Indication: BLOOD CHOLESTEROL INCREASED
     Dates: start: 20060101

REACTIONS (1)
  - APHASIA [None]
